FAERS Safety Report 8166833-3 (Version None)
Quarter: 2012Q1

REPORT INFORMATION
  Report Type: 
  Country: None (occurrence: None)
  Receive Date: 20120227
  Receipt Date: 20120222
  Transmission Date: 20120608
  Serious: Yes (Death)
  Sender: FDA-Public Use
  Company Number: US-MEDIMMUNE-MEDI-0014412

PATIENT
  Sex: Female

DRUGS (7)
  1. CAPTOPRIL [Concomitant]
     Indication: HEART DISEASE CONGENITAL
  2. LASIX [Concomitant]
     Indication: HEART DISEASE CONGENITAL
  3. ASPIRIN [Concomitant]
     Indication: HEART DISEASE CONGENITAL
  4. CAPITAL/COD [Concomitant]
  5. POLY-VI-SOL [Concomitant]
  6. SYNAGIS [Suspect]
     Route: 030
     Dates: start: 20111209, end: 20111209
  7. DIGOXIN [Concomitant]
     Indication: HEART DISEASE CONGENITAL

REACTIONS (2)
  - CONGENITAL HEARING DISORDER [None]
  - HEART DISEASE CONGENITAL [None]
